FAERS Safety Report 22109586 (Version 1)
Quarter: 2023Q1

REPORT INFORMATION
  Report Type: Spontaneous
  Country: JP (occurrence: JP)
  Receive Date: 20230317
  Receipt Date: 20230317
  Transmission Date: 20230417
  Serious: Yes (Hospitalization)
  Sender: FDA-Public Use
  Company Number: JP-GSKJP-JP2023028946

PATIENT
  Sex: Female

DRUGS (6)
  1. BOTOX [Suspect]
     Active Substance: ONABOTULINUMTOXINA
     Indication: Facial spasm
     Dosage: UNK, SINGLE
     Dates: start: 20230228, end: 20230228
  2. LIMAPROST [Concomitant]
     Active Substance: LIMAPROST
     Dosage: AFTER EVERY MEAL
  3. calblock tablets [Concomitant]
     Dosage: 16 MG,AFTER BREAKFAST
  4. RIVOTRIL [Concomitant]
     Active Substance: CLONAZEPAM
     Dosage: 0.5 DF, QD, AFTER DINNER
  5. TRICHLORMETHIAZIDE [Concomitant]
     Active Substance: TRICHLORMETHIAZIDE
     Dosage: 1 MG, QD, AFTER BREAKFAST
  6. SUPLATAST TOSILATE [Concomitant]
     Active Substance: SUPLATAST TOSILATE
     Dosage: 100 MG, TID, AFTER EVERY MEAL

REACTIONS (2)
  - Fall [Recovered/Resolved]
  - Femur fracture [Unknown]
